FAERS Safety Report 19177446 (Version 2)
Quarter: 2021Q2

REPORT INFORMATION
  Report Type: Report from Study
  Country: CA (occurrence: CA)
  Receive Date: 20210425
  Receipt Date: 20210506
  Transmission Date: 20210717
  Serious: Yes (Death, Disabling, Other)
  Sender: FDA-Public Use
  Company Number: CA-HLS-202107393

PATIENT
  Age: 68 Year
  Sex: Male
  Weight: 95 kg

DRUGS (8)
  1. LITHIUM. [Suspect]
     Active Substance: LITHIUM
     Indication: SCHIZOAFFECTIVE DISORDER
     Dosage: SINCE PRIOR TO 2010
     Route: 048
     Dates: end: 20210420
  2. TYLENOL [Concomitant]
     Active Substance: ACETAMINOPHEN
     Indication: PRODUCT USED FOR UNKNOWN INDICATION
     Route: 048
  3. WARFARIN [Concomitant]
     Active Substance: WARFARIN
     Indication: PRODUCT USED FOR UNKNOWN INDICATION
     Dosage: 6 MG 5 DAYS A WEEK , 8 MG 2 DAYS A WEEK
     Route: 048
  4. MAGNESIUM OXIDE. [Concomitant]
     Active Substance: MAGNESIUM OXIDE
     Indication: PRODUCT USED FOR UNKNOWN INDICATION
     Route: 065
  5. BISACODYL. [Concomitant]
     Active Substance: BISACODYL
     Indication: PRODUCT USED FOR UNKNOWN INDICATION
     Route: 048
  6. CLOZARIL [Suspect]
     Active Substance: CLOZAPINE
     Indication: SCHIZOAFFECTIVE DISORDER
     Route: 048
     Dates: start: 20181019
  7. CLOZARIL [Suspect]
     Active Substance: CLOZAPINE
     Indication: SCHIZOAFFECTIVE DISORDER
     Route: 048
     Dates: start: 20181018, end: 20200420
  8. ROSUVASTATIN. [Concomitant]
     Active Substance: ROSUVASTATIN
     Indication: PRODUCT USED FOR UNKNOWN INDICATION
     Route: 048

REACTIONS (11)
  - Death [Fatal]
  - Endocarditis [Fatal]
  - Cardiac failure [Fatal]
  - Pyrexia [Unknown]
  - Dyspnoea [Unknown]
  - Neutrophil count increased [Unknown]
  - Mitral valve incompetence [Fatal]
  - Chest pain [Unknown]
  - White blood cell count increased [Unknown]
  - Leukocytosis [Unknown]
  - Myocarditis [Unknown]

NARRATIVE: CASE EVENT DATE: 202104
